FAERS Safety Report 17810222 (Version 1)
Quarter: 2020Q2

REPORT INFORMATION
  Report Type: Spontaneous
  Country: US (occurrence: US)
  Receive Date: 20200521
  Receipt Date: 20200521
  Transmission Date: 20200714
  Serious: Yes (Hospitalization, Other)
  Sender: FDA-Public Use
  Company Number: US-PACIRA-202000163

PATIENT

DRUGS (13)
  1. GABAPENTIN. [Concomitant]
     Active Substance: GABAPENTIN
     Indication: PERIOPERATIVE ANALGESIA
     Dosage: 100 MG 1 HOUR BEFORE SURGERY
     Route: 065
  2. VANCOMYCIN [Concomitant]
     Active Substance: VANCOMYCIN
     Indication: ANTIBIOTIC PROPHYLAXIS
     Dosage: 1000 MG FOR PENICILLIN ALLERGY
     Route: 065
  3. TRAMADOL. [Concomitant]
     Active Substance: TRAMADOL
     Indication: PROCEDURAL PAIN
     Dosage: 50 MG EVERY 6 HOURS
     Route: 048
  4. ACETAMINOPHEN. [Concomitant]
     Active Substance: ACETAMINOPHEN
     Indication: PERIOPERATIVE ANALGESIA
     Dosage: 1000 MG EVERY 8 HOUR AFTER SURGERY
     Route: 048
  5. MORPHINE [Concomitant]
     Active Substance: MORPHINE
     Indication: BREAKTHROUGH PAIN
     Dosage: 2-4 MG EVERY 6 HOURS AS NEEDED
     Route: 042
  6. CEFAZOLIN [Concomitant]
     Active Substance: CEFAZOLIN
     Indication: ANTIBIOTIC PROPHYLAXIS
     Dosage: 2 G FOR {120 KG OR 3 G }120 KG
     Route: 065
  7. KETOROLAC [Concomitant]
     Active Substance: KETOROLAC TROMETHAMINE
     Indication: PROCEDURAL PAIN
     Dosage: 15 MG EVERY 6 HOURS AS NEEDED FOR 2 DAYS (IF NO MED CONTRAINDICATIONS)
     Route: 042
  8. EXPAREL [Suspect]
     Active Substance: BUPIVACAINE
     Indication: NERVE BLOCK
     Dosage: R-VAT;INFILTRATE 9 INTERCOSTAL SPACE 1.5ML UNDILUTED, 5-6ML INFILTRATE AT INCISIONS AT CLOSE
  9. GABAPENTIN. [Concomitant]
     Active Substance: GABAPENTIN
     Indication: PERIOPERATIVE ANALGESIA
     Dosage: 100 MG EVERY 8 HOUR AFTER SURGERY
     Route: 048
  10. HYDROMORPHONE [Concomitant]
     Active Substance: HYDROMORPHONE
     Indication: BREAKTHROUGH PAIN
     Dosage: 0.5-2.0 MG EVERY 6 HOURS AS NEEDED
     Route: 042
  11. EXPAREL [Suspect]
     Active Substance: BUPIVACAINE
     Indication: NERVE BLOCK
     Dosage: THORAC; 20ML+20ML SALINE; 20ML INTERCOSTAL SPACES/SOFT TISSUE AT INCISION, 20ML SUBDERMIS SKIN EDGES
  12. ACETAMINOPHEN. [Concomitant]
     Active Substance: ACETAMINOPHEN
     Indication: PERIOPERATIVE ANALGESIA
     Dosage: 1000 MG 1 HOUR BEFORE SURGERY
     Route: 065
  13. OXYCODONE [Concomitant]
     Active Substance: OXYCODONE
     Indication: PROCEDURAL PAIN
     Dosage: 5 MG EVERY 6 HOURS AS NEEDED
     Route: 048

REACTIONS (3)
  - Off label use [Unknown]
  - Post procedural complication [Unknown]
  - Hospitalisation [Unknown]
